FAERS Safety Report 21683804 (Version 5)
Quarter: 2023Q1

REPORT INFORMATION
  Report Type: Report from Study
  Country: IE (occurrence: IE)
  Receive Date: 20221205
  Receipt Date: 20230131
  Transmission Date: 20230417
  Serious: Yes (Hospitalization)
  Sender: FDA-Public Use
  Company Number: IE-REGENERON PHARMACEUTICALS, INC.-2022-151889

PATIENT
  Age: 69 Year
  Sex: Male

DRUGS (8)
  1. CEMIPLIMAB [Suspect]
     Active Substance: CEMIPLIMAB
     Indication: Squamous cell carcinoma
     Dosage: 350 MG, Q3W
     Route: 042
     Dates: start: 20221017, end: 20221107
  2. FEXOFENADINE [Concomitant]
     Active Substance: FEXOFENADINE HYDROCHLORIDE
     Indication: Rash maculo-papular
     Dosage: 180 MG, QD
     Route: 048
     Dates: start: 20221021, end: 20221028
  3. FEXOFENADINE [Concomitant]
     Active Substance: FEXOFENADINE HYDROCHLORIDE
     Indication: Skin infection
     Dosage: 180 MG, QD
     Route: 048
     Dates: start: 20221104, end: 20221110
  4. AQUEOUS [EMULSIFYING WAX;PARAFFIN, LIQUID;WHITE SOFT PARAFFIN] [Concomitant]
     Indication: Rash maculo-papular
     Dosage: 1, TOPICAL CREAM, PRN
     Route: 061
     Dates: start: 20221021
  5. ACETAMINOPHEN [Concomitant]
     Active Substance: ACETAMINOPHEN
     Indication: Ear pain
     Dosage: 1 G, AS NECESSARY (PRN)
     Route: 048
     Dates: start: 20221021
  6. IBUPROFEN [Concomitant]
     Active Substance: IBUPROFEN
     Indication: Ear pain
     Dosage: 400 MG, AS NECESSARY
     Route: 048
     Dates: start: 20221021
  7. LYRICA [Concomitant]
     Active Substance: PREGABALIN
     Indication: Arthralgia
     Dosage: 50 MG, BID
     Route: 048
     Dates: start: 20221026, end: 20221127
  8. MINOCYCLINE [Concomitant]
     Active Substance: MINOCYCLINE HYDROCHLORIDE
     Indication: Skin infection
     Dosage: 100 MG, QD
     Route: 048
     Dates: start: 20221104, end: 20221110

REACTIONS (2)
  - Immune-mediated dermatitis [Recovered/Resolved]
  - Cellulitis [Recovered/Resolved]

NARRATIVE: CASE EVENT DATE: 20221128
